FAERS Safety Report 16809959 (Version 1)
Quarter: 2019Q3

REPORT INFORMATION
  Report Type: Spontaneous
  Country: US (occurrence: US)
  Receive Date: 20190916
  Receipt Date: 20190916
  Transmission Date: 20191005
  Serious: Yes (Other)
  Sender: FDA-Public Use
  Company Number: US-BRAINTREE LABORATORIES-190500

PATIENT
  Age: 69 Year
  Sex: Female
  Weight: 85.73 kg

DRUGS (1)
  1. SUPREP BOWEL PREP [Suspect]
     Active Substance: MAGNESIUM SULFATE\POTASSIUM SULFATE\SODIUM SULFATE
     Indication: COLONOSCOPY
     Dosage: 1 X 6 OZ. BOTTLE
     Route: 048
     Dates: start: 20190905, end: 20190905

REACTIONS (8)
  - Back pain [None]
  - Vomiting [None]
  - Headache [None]
  - Musculoskeletal pain [None]
  - Dehydration [None]
  - Loss of consciousness [None]
  - Asthenia [None]
  - Neck pain [None]

NARRATIVE: CASE EVENT DATE: 20190905
